FAERS Safety Report 10651867 (Version 4)
Quarter: 2015Q2

REPORT INFORMATION
  Report Type: Spontaneous
  Country: US (occurrence: US)
  Receive Date: 20141215
  Receipt Date: 20150415
  Transmission Date: 20150821
  Serious: Yes (Disabling)
  Sender: FDA-Public Use
  Company Number: US-009507513-1204USA04479

PATIENT
  Sex: Male
  Weight: 83.45 kg

DRUGS (1)
  1. PROPECIA [Suspect]
     Active Substance: FINASTERIDE
     Indication: ALOPECIA
     Dosage: 1 MG, DAILY
     Route: 048
     Dates: start: 20060228, end: 20091118

REACTIONS (14)
  - Ejaculation disorder [Unknown]
  - Spondylolisthesis [Unknown]
  - Anxiety [Not Recovered/Not Resolved]
  - Ejaculation failure [Unknown]
  - Intervertebral disc degeneration [Unknown]
  - Erectile dysfunction [Not Recovered/Not Resolved]
  - Arthropathy [Unknown]
  - Sexual dysfunction [Unknown]
  - Testicular atrophy [Unknown]
  - Road traffic accident [Unknown]
  - Cognitive disorder [Unknown]
  - Loss of libido [Not Recovered/Not Resolved]
  - Depression [Not Recovered/Not Resolved]
  - Rectal haemorrhage [Unknown]

NARRATIVE: CASE EVENT DATE: 2007
